FAERS Safety Report 4802554-X (Version None)
Quarter: 2005Q4

REPORT INFORMATION
  Report Type: 
  Country: None (occurrence: None)
  Receive Date: 20051013
  Receipt Date: 20051003
  Transmission Date: 20060501
  Serious: Yes (Other)
  Sender: FDA-Public Use
  Company Number: US-2005-002821

PATIENT
  Age: 73 Year
  Sex: Female
  Weight: 59.4212 kg

DRUGS (2)
  1. FLUDARA [Suspect]
     Indication: B-CELL LYMPHOMA
     Dosage: ^STANDARD DOSE^
  2. RITUXAN [Concomitant]

REACTIONS (6)
  - BONE MARROW DISORDER [None]
  - BONE MARROW TOXICITY [None]
  - IMMUNE SYSTEM DISORDER [None]
  - PLATELET COUNT DECREASED [None]
  - RED BLOOD CELL COUNT DECREASED [None]
  - WHITE BLOOD CELL COUNT DECREASED [None]
